FAERS Safety Report 9031454 (Version 3)
Quarter: 2013Q2

REPORT INFORMATION
  Report Type: Report from Study
  Country: CA (occurrence: CA)
  Receive Date: 20130124
  Receipt Date: 20130516
  Transmission Date: 20140414
  Serious: Yes (Hospitalization, Other)
  Sender: FDA-Public Use
  Company Number: CA-UCBSA-076185

PATIENT
  Age: 46 Year
  Sex: Female
  Weight: 129.09 kg

DRUGS (5)
  1. CIMZIA [Suspect]
     Indication: RHEUMATOID ARTHRITIS
     Route: 058
     Dates: start: 20110906
  2. CIMZIA [Suspect]
     Indication: RHEUMATOID ARTHRITIS
     Dosage: WKS -0,2,4
     Route: 058
     Dates: start: 20110726, end: 20110823
  3. METHOTREXATE [Concomitant]
     Indication: RHEUMATOID ARTHRITIS
     Route: 058
     Dates: start: 2009
  4. PLAQUENIL [Concomitant]
     Indication: RHEUMATOID ARTHRITIS
     Dosage: NB OF INTAKES: ID
     Route: 048
     Dates: start: 2009
  5. ACIDE FOLIQUE [Concomitant]
     Indication: RHEUMATOID ARTHRITIS
     Dosage: NB OF INTAKES: 5/7 DAYS
     Route: 048
     Dates: start: 2009

REACTIONS (6)
  - Cellulitis [Recovered/Resolved]
  - Loss of consciousness [Recovering/Resolving]
  - Craniocerebral injury [Unknown]
  - Headache [Recovering/Resolving]
  - Fall [Recovering/Resolving]
  - Pain [Recovering/Resolving]
